FAERS Safety Report 4466041-3 (Version None)
Quarter: 2004Q3

REPORT INFORMATION
  Report Type: 
  Country: None (occurrence: None)
  Receive Date: 20040930
  Receipt Date: 20040930
  Transmission Date: 20050211
  Serious: Yes (Other)
  Sender: FDA-Public Use
  Company Number: None

PATIENT
  Sex: Male

DRUGS (6)
  1. PEG-INTERFERON ALPHA 2B [Suspect]
     Indication: HEPATITIS C
     Dosage: 150MCG  WEEKLY  SUBCUTANEOUS
     Route: 058
     Dates: start: 20040220, end: 20040514
  2. RIBAVIRIN [Concomitant]
  3. EPOGEN [Concomitant]
  4. GABAPENTIN [Concomitant]
  5. MIRTAZAPINE [Concomitant]
  6. HYDROCODONE BITARTRATE AND ACETAMINOPHEN [Concomitant]

REACTIONS (1)
  - HYPERTRIGLYCERIDAEMIA [None]
